FAERS Safety Report 8514240-3 (Version None)
Quarter: 2012Q3

REPORT INFORMATION
  Report Type: 
  Country: None (occurrence: None)
  Receive Date: 20120717
  Receipt Date: 20120711
  Transmission Date: 20120928
  Serious: Yes (Other)
  Sender: FDA-Public Use
  Company Number: FR-SANOFI-AVENTIS-2012SA049299

PATIENT
  Age: 10 Year
  Sex: Female

DRUGS (4)
  1. FLUCONAZOLE [Suspect]
     Indication: INFECTION
     Route: 042
     Dates: start: 20120605, end: 20120617
  2. FLUCONAZOLE [Suspect]
     Route: 048
     Dates: start: 20120618, end: 20120626
  3. RIFADIN [Suspect]
     Indication: INFECTION
     Dosage: STRENGTH: 300 MG
     Route: 048
     Dates: start: 20120618, end: 20120626
  4. BACTRIM [Suspect]
     Indication: INFECTION
     Route: 048
     Dates: start: 20120618, end: 20120626

REACTIONS (2)
  - LYMPHOPENIA [None]
  - NEUTROPENIA [None]
